FAERS Safety Report 9188133 (Version 1)
Quarter: 2013Q1

REPORT INFORMATION
  Report Type: Spontaneous
  Country: US (occurrence: US)
  Receive Date: 20130325
  Receipt Date: 20130325
  Transmission Date: 20140127
  Serious: Yes (Disabling, Other)
  Sender: FDA-Public Use
  Company Number: US-TEVA-394185USA

PATIENT
  Sex: Female

DRUGS (3)
  1. PROPOXYPHENE NAPSYLATE AND ACETAMINOPHEN [Suspect]
  2. DARVOCET [Suspect]
  3. DARVON [Suspect]

REACTIONS (5)
  - Bundle branch block left [Unknown]
  - Electrocardiogram T wave peaked [Unknown]
  - Electrocardiogram QT prolonged [Unknown]
  - Cardiac disorder [Unknown]
  - Cardiovascular disorder [Unknown]
